FAERS Safety Report 7063843-4 (Version None)
Quarter: 2010Q4

REPORT INFORMATION
  Report Type: 
  Country: None (occurrence: None)
  Receive Date: 20101026
  Receipt Date: 20100910
  Transmission Date: 20110411
  Serious: No
  Sender: FDA-Public Use
  Company Number: US-ABBOTT-10P-163-0669642-00

PATIENT
  Age: 30 Year
  Sex: Female

DRUGS (1)
  1. LUPRON [Suspect]
     Indication: ENDOMETRIOSIS

REACTIONS (7)
  - AMNESIA [None]
  - ANXIETY [None]
  - CRYING [None]
  - INJECTION SITE PAIN [None]
  - MENOPAUSE [None]
  - MOOD SWINGS [None]
  - SENSORY DISTURBANCE [None]
